FAERS Safety Report 9848938 (Version 1)
Quarter: 2013Q4

REPORT INFORMATION
  Report Type: Spontaneous
  Country: US (occurrence: None)
  Receive Date: 20131224
  Receipt Date: 20131224
  Transmission Date: 20140711
  Serious: Yes (Disabling)
  Sender: FDA-Public Use
  Company Number: PHEH2012US025110

PATIENT
  Age: 14 Year
  Sex: Male
  Weight: 44.9 kg

DRUGS (3)
  1. FOCALIN XR [Suspect]
     Indication: ATTENTION DEFICIT/HYPERACTIVITY DISORDER
     Route: 048
     Dates: start: 20121201, end: 20121209
  2. ADDERALL [Suspect]
  3. VYVANSE (LISDEXAMFETAMINE MESILATE) [Suspect]

REACTIONS (10)
  - Disturbance in attention [None]
  - Psychomotor hyperactivity [None]
  - Condition aggravated [None]
  - Aggression [None]
  - Emotional disorder [None]
  - Crying [None]
  - Abdominal discomfort [None]
  - Decreased appetite [None]
  - Headache [None]
  - Drug ineffective [None]
